FAERS Safety Report 7725914-6 (Version None)
Quarter: 2011Q3

REPORT INFORMATION
  Report Type: 
  Country: None (occurrence: None)
  Receive Date: 20110902
  Receipt Date: 20110825
  Transmission Date: 20111222
  Serious: Yes (Hospitalization)
  Sender: FDA-Public Use
  Company Number: AT-JNJFOC-20090405456

PATIENT
  Sex: Female
  Weight: 69 kg

DRUGS (6)
  1. AKTIFERRIN [Concomitant]
     Indication: ANAEMIA
  2. HUMIRA [Concomitant]
     Dates: start: 20081215
  3. ALL OTHER THERAPEUTIC PRODUCTS [Concomitant]
     Indication: CROHN'S DISEASE
  4. HUMIRA [Concomitant]
     Indication: CROHN'S DISEASE
     Dates: start: 20081229
  5. XEFO [Concomitant]
  6. REMICADE [Suspect]
     Indication: CROHN'S DISEASE
     Route: 042
     Dates: start: 20080910

REACTIONS (3)
  - CROHN'S DISEASE [None]
  - ANAL ABSCESS [None]
  - FISTULA [None]
